FAERS Safety Report 9413396 (Version 1)
Quarter: 2013Q3

REPORT INFORMATION
  Report Type: Spontaneous
  Country: FR (occurrence: None)
  Receive Date: 20130717
  Receipt Date: 20130717
  Transmission Date: 20140515
  Serious: Yes (Hospitalization)
  Sender: FDA-Public Use
  Company Number: SYM-2013-06229

PATIENT
  Age: 62 Year
  Sex: Male

DRUGS (2)
  1. MONO-TILDIEM [Suspect]
     Indication: HYPERTENSION
     Route: 048
     Dates: start: 20130517, end: 20130609
  2. STAGID (METFORMIN EMBONATE) (METFORMIN EMBONATE) [Concomitant]

REACTIONS (7)
  - Vascular purpura [None]
  - General physical health deterioration [None]
  - Abdominal pain [None]
  - Nausea [None]
  - Vomiting [None]
  - Arthralgia [None]
  - Henoch-Schonlein purpura [None]
